FAERS Safety Report 7652509-5 (Version None)
Quarter: 2011Q3

REPORT INFORMATION
  Report Type: 
  Country: None (occurrence: None)
  Receive Date: 20110722
  Receipt Date: 20101208
  Transmission Date: 20111222
  Serious: Yes (Hospitalization)
  Sender: FDA-Public Use
  Company Number: UTC-003087

PATIENT
  Age: 45 Year
  Sex: Female
  Weight: 136 kg

DRUGS (2)
  1. REMODULIN [Suspect]
     Indication: PULMONARY ARTERIAL HYPERTENSION
     Dosage: 109.44 UG/KG (0.076 UG/KG, 1 IN 1 MIN), SUBCUTANEOUS
     Route: 058
     Dates: start: 20100125
  2. DIURETICS (DIURETICS) [Concomitant]

REACTIONS (1)
  - OEDEMA [None]
